FAERS Safety Report 6834335-X (Version None)
Quarter: 2010Q3

REPORT INFORMATION
  Report Type: 
  Country: None (occurrence: None)
  Receive Date: 20100712
  Receipt Date: 20070809
  Transmission Date: 20110219
  Serious: No
  Sender: FDA-Public Use
  Company Number: US-PFIZER INC-2007026544

PATIENT
  Age: 50 Year
  Sex: Female
  Weight: 68.04 kg

DRUGS (19)
  1. CHANTIX [Suspect]
     Indication: SMOKING CESSATION THERAPY
     Dates: start: 20070101
  2. DILANTIN [Suspect]
     Indication: PARAESTHESIA
  3. DILANTIN [Suspect]
     Indication: HYPOAESTHESIA
  4. LYRICA [Suspect]
     Indication: PARAESTHESIA
     Dates: start: 20060901
  5. LYRICA [Suspect]
     Indication: HYPOAESTHESIA
  6. AMITRIPTYLINE HCL [Suspect]
  7. THYROLAR [Concomitant]
  8. ESTRATEST [Concomitant]
     Indication: MENOPAUSE
  9. PRILOSEC [Concomitant]
  10. MONTELUKAST SODIUM [Concomitant]
  11. ALPRAZOLAM [Concomitant]
  12. PLAQUENIL [Concomitant]
  13. DARVOCET [Concomitant]
  14. ACTONEL [Concomitant]
     Indication: OSTEOPOROSIS
  15. ADVAIR DISKUS 100/50 [Concomitant]
  16. ALBUTEROL [Concomitant]
  17. FLONASE [Concomitant]
     Indication: MULTIPLE ALLERGIES
  18. FLONASE [Concomitant]
     Indication: ASTHMA
  19. ROBAXIN [Concomitant]

REACTIONS (3)
  - DRUG INEFFECTIVE [None]
  - STRESS [None]
  - WEIGHT INCREASED [None]
